FAERS Safety Report 4857408-X (Version None)
Quarter: 2005Q4

REPORT INFORMATION
  Report Type: 
  Country: None (occurrence: None)
  Receive Date: 20051219
  Receipt Date: 20050303
  Transmission Date: 20060501
  Serious: No
  Sender: FDA-Public Use
  Company Number: US-GLAXOSMITHKLINE-A0548075A

PATIENT
  Age: 43 Year
  Sex: Female

DRUGS (11)
  1. NICODERM CQ [Suspect]
     Dates: start: 20050303
  2. HYDROMORPHONE [Concomitant]
  3. CLONAZEPAM [Concomitant]
  4. TOPAMAX [Concomitant]
  5. KEPPRA [Concomitant]
  6. COMBIVENT [Concomitant]
  7. MAXALT [Concomitant]
     Indication: HEADACHE
  8. CELEBREX [Concomitant]
  9. NORCO [Concomitant]
  10. ACIPHEX [Concomitant]
  11. VYTORIN [Concomitant]
     Indication: BLOOD CHOLESTEROL INCREASED

REACTIONS (4)
  - APPLICATION SITE PRURITUS [None]
  - HEADACHE [None]
  - NAUSEA [None]
  - NERVOUSNESS [None]
